FAERS Safety Report 9700765 (Version 5)
Quarter: 2014Q1

REPORT INFORMATION
  Report Type: Spontaneous
  Country: CZ (occurrence: CZ)
  Receive Date: 20131121
  Receipt Date: 20140129
  Transmission Date: 20141002
  Serious: Yes (Hospitalization)
  Sender: FDA-Public Use
  Company Number: PHHY2013CZ132565

PATIENT
  Age: 40 Year
  Sex: Female
  Weight: 43 kg

DRUGS (1)
  1. GILENYA [Suspect]
     Indication: MULTIPLE SCLEROSIS
     Dosage: 0.5 MG, QD
     Route: 048
     Dates: start: 20131031, end: 20131108

REACTIONS (9)
  - Vasospasm [Unknown]
  - Peripheral ischaemia [Unknown]
  - Pain in extremity [Unknown]
  - Skin discolouration [Unknown]
  - Condition aggravated [Unknown]
  - Muscle spasms [Unknown]
  - White blood cells urine positive [Unknown]
  - Red blood cells urine positive [Unknown]
  - Bacterial test positive [Unknown]
